FAERS Safety Report 17734776 (Version 7)
Quarter: 2021Q2

REPORT INFORMATION
  Report Type: Report from Study
  Country: None (occurrence: FR)
  Receive Date: 20200501
  Receipt Date: 20210601
  Transmission Date: 20210716
  Serious: Yes (Hospitalization, Other)
  Sender: FDA-Public Use
  Company Number: FR-ABBVIE-20P-056-3380859-00

PATIENT
  Age: 73 Year
  Sex: Female
  Weight: 59 kg

DRUGS (12)
  1. DOLIPRANE [Concomitant]
     Active Substance: ACETAMINOPHEN
     Indication: HEADACHE
     Route: 048
     Dates: start: 20191130, end: 20200215
  2. ACTISKENAN [Concomitant]
     Active Substance: MORPHINE SULFATE
     Indication: HEADACHE
     Route: 048
     Dates: start: 20200312
  3. CETIRIZINE [Concomitant]
     Active Substance: CETIRIZINE HYDROCHLORIDE
     Indication: PRURITUS
     Route: 048
     Dates: start: 20200118
  4. UPADACITINIB [Suspect]
     Active Substance: UPADACITINIB
     Indication: GIANT CELL ARTERITIS
     Route: 048
     Dates: start: 20200213, end: 20200423
  5. PREDNISOLONE. [Suspect]
     Active Substance: PREDNISOLONE
     Dosage: ESCAPE THERAPY (UNIT DOSE REPRESENTS THE DOSE AT THE TIME OF THE EVENT)
     Route: 048
     Dates: start: 20200507
  6. CALCIDOSE [Concomitant]
     Indication: OSTEOPOROSIS
     Route: 048
     Dates: start: 20200110
  7. UPADACITINIB [Suspect]
     Active Substance: UPADACITINIB
     Route: 048
     Dates: start: 20200507
  8. DOLIPRANE [Concomitant]
     Active Substance: ACETAMINOPHEN
     Route: 048
     Dates: start: 20200216
  9. PREDNISOLONE. [Suspect]
     Active Substance: PREDNISOLONE
     Dosage: ESCAPE THERAPY (UNIT DOSE REPRESENTS THE DOSE AT THE TIME OF THE EVENT)
     Route: 048
     Dates: start: 20200227, end: 20200423
  10. LEVOTHYROX [Concomitant]
     Active Substance: LEVOTHYROXINE
     Indication: HYPOTHYROIDISM
     Route: 048
     Dates: start: 1995
  11. PREDNISOLONE. [Suspect]
     Active Substance: PREDNISOLONE
     Indication: GIANT CELL ARTERITIS
     Dosage: PER CS OPEN?LABEL TAPER SCHEDULE
     Route: 048
     Dates: start: 20200213, end: 20200226
  12. KARDEGIC [Concomitant]
     Active Substance: ASPIRIN DL-LYSINE
     Indication: THROMBOSIS PROPHYLAXIS
     Route: 048
     Dates: start: 20200105

REACTIONS (1)
  - Septic arthritis streptococcal [Recovered/Resolved]

NARRATIVE: CASE EVENT DATE: 20200422
